FAERS Safety Report 13995963 (Version 1)
Quarter: 2017Q3

REPORT INFORMATION
  Report Type: Spontaneous
  Country: US (occurrence: US)
  Receive Date: 20170921
  Receipt Date: 20170921
  Transmission Date: 20171128
  Serious: No
  Sender: FDA-Public Use
  Company Number: US-AMARIN PHARMA, INC.-2017AMR000161

PATIENT
  Sex: Female

DRUGS (3)
  1. VASCEPA [Suspect]
     Active Substance: ICOSAPENT ETHYL
     Indication: BLOOD CHOLESTEROL INCREASED
     Route: 065
  2. ULTRAM [Concomitant]
     Active Substance: TRAMADOL HYDROCHLORIDE
     Indication: PAIN
  3. ALDACTONE [Concomitant]
     Active Substance: SPIRONOLACTONE
     Indication: FLUID IMBALANCE

REACTIONS (3)
  - Joint warmth [Recovered/Resolved]
  - Drug dose omission [Unknown]
  - Joint stiffness [Recovered/Resolved]
